FAERS Safety Report 17653114 (Version 1)
Quarter: 2020Q2

REPORT INFORMATION
  Report Type: Spontaneous
  Country: ES (occurrence: ES)
  Receive Date: 20200410
  Receipt Date: 20200410
  Transmission Date: 20200713
  Serious: Yes (Hospitalization)
  Sender: FDA-Public Use
  Company Number: ES-TEVA-2020-ES-1221538

PATIENT
  Age: 69 Year
  Sex: Female
  Weight: 57 kg

DRUGS (3)
  1. EPLERENONA (2924A) [Interacting]
     Active Substance: EPLERENONE
     Indication: VENTRICULAR DYSFUNCTION
     Dosage: 50 MG/24H
     Route: 048
     Dates: start: 20200203, end: 20200227
  2. ENALAPRIL (2142A) [Suspect]
     Active Substance: ENALAPRIL
     Indication: VENTRICULAR DYSFUNCTION
     Dosage: 5 MG/12H
     Route: 048
     Dates: start: 20200203, end: 20200227
  3. FUROSEMIDA (1615A) [Interacting]
     Active Substance: FUROSEMIDE
     Indication: VENTRICULAR DYSFUNCTION
     Route: 048
     Dates: start: 20200203

REACTIONS (2)
  - Drug interaction [Unknown]
  - Hyponatraemia [Recovered/Resolved]

NARRATIVE: CASE EVENT DATE: 20200227
